FAERS Safety Report 20217280 (Version 2)
Quarter: 2022Q1

REPORT INFORMATION
  Report Type: Report from Study
  Country: US (occurrence: US)
  Receive Date: 20211222
  Receipt Date: 20220124
  Transmission Date: 20220423
  Serious: No
  Sender: FDA-Public Use
  Company Number: US-BEH-2021138611

PATIENT
  Age: 65 Year
  Sex: Female

DRUGS (3)
  1. HIZENTRA [Suspect]
     Active Substance: HUMAN IMMUNOGLOBULIN G
     Indication: Hypogammaglobulinaemia
     Dosage: 10 GRAM, QW
     Route: 058
  2. HIZENTRA [Suspect]
     Active Substance: HUMAN IMMUNOGLOBULIN G
     Indication: Chronic inflammatory demyelinating polyradiculoneuropathy
     Dosage: 3 DOSAGE FORM, QW
     Route: 058
  3. HIZENTRA [Suspect]
     Active Substance: HUMAN IMMUNOGLOBULIN G
     Indication: Primary immunodeficiency syndrome
     Dosage: 6 GRAM, QW
     Route: 058
     Dates: start: 2015

REACTIONS (12)
  - Fatigue [Not Recovered/Not Resolved]
  - Insurance issue [Not Recovered/Not Resolved]
  - Pain of skin [Not Recovered/Not Resolved]
  - Insurance issue [Not Recovered/Not Resolved]
  - Headache [Not Recovered/Not Resolved]
  - Insurance issue [Not Recovered/Not Resolved]
  - Respiratory disorder [Recovered/Resolved]
  - Insurance issue [Recovered/Resolved]
  - Fatigue [Recovering/Resolving]
  - Insurance issue [Recovering/Resolving]
  - No adverse event [Unknown]
  - Product dose omission issue [Unknown]

NARRATIVE: CASE EVENT DATE: 20210801
